FAERS Safety Report 4631420-8 (Version None)
Quarter: 2005Q2

REPORT INFORMATION
  Report Type: 
  Country: None (occurrence: None)
  Receive Date: 20050407
  Receipt Date: 20050325
  Transmission Date: 20051028
  Serious: Yes (Hospitalization, Other)
  Sender: FDA-Public Use
  Company Number: HQWYE150622DEC04

PATIENT
  Age: 41 Year
  Sex: Female
  Weight: 63.56 kg

DRUGS (14)
  1. EFFEXOR XR [Suspect]
     Indication: HEADACHE
     Dosage: 37.5 MG 1X PER 1 DAY, ORAL; 75 MG 1X PER 1 DAY, ORAL
     Route: 048
     Dates: start: 20010109, end: 20010115
  2. EFFEXOR XR [Suspect]
     Indication: PREMENSTRUAL SYNDROME
     Dosage: 37.5 MG 1X PER 1 DAY, ORAL; 75 MG 1X PER 1 DAY, ORAL
     Route: 048
     Dates: start: 20010109, end: 20010115
  3. EFFEXOR XR [Suspect]
     Indication: HEADACHE
     Dosage: 37.5 MG 1X PER 1 DAY, ORAL; 75 MG 1X PER 1 DAY, ORAL
     Route: 048
     Dates: start: 20010116, end: 20040609
  4. EFFEXOR XR [Suspect]
     Indication: PREMENSTRUAL SYNDROME
     Dosage: 37.5 MG 1X PER 1 DAY, ORAL; 75 MG 1X PER 1 DAY, ORAL
     Route: 048
     Dates: start: 20010116, end: 20040609
  5. LISINOPRIL [Concomitant]
  6. ZONISAMIDE (ZONISAMIDE) [Concomitant]
  7. SONATA [Concomitant]
  8. NASACORT [Concomitant]
  9. ALLEGRA-D [Concomitant]
  10. ALEVE [Concomitant]
  11. MOBIC [Concomitant]
  12. EXCEDRIN (ACETYLSALICYLIC ACID/CAFFEINE/PARACETAMOL/SALICYLAMIDE) [Concomitant]
  13. AXERT [Concomitant]
  14. VICODIN [Concomitant]

REACTIONS (9)
  - ABNORMAL DREAMS [None]
  - ARTERIOSPASM CORONARY [None]
  - DRUG WITHDRAWAL SYNDROME [None]
  - FATIGUE [None]
  - HYPERHIDROSIS [None]
  - INSOMNIA [None]
  - MEDICATION ERROR [None]
  - MOOD ALTERED [None]
  - MYOCARDIAL INFARCTION [None]
